FAERS Safety Report 4703555-2 (Version None)
Quarter: 2005Q2

REPORT INFORMATION
  Report Type: 
  Country: None (occurrence: None)
  Receive Date: 20050628
  Receipt Date: 20050614
  Transmission Date: 20051028
  Serious: Yes (Disabling)
  Sender: FDA-Public Use
  Company Number: 2004097390

PATIENT
  Age: 61 Year
  Sex: Female
  Weight: 71.2147 kg

DRUGS (9)
  1. DETROL LA [Suspect]
     Indication: BLADDER DISORDER
     Dosage: 4 MG (4 MG, 1 IN 1 D), ORAL
     Route: 048
     Dates: start: 20040311, end: 20040313
  2. TRAZODONE (TRAZODONE) [Concomitant]
  3. LORAZEPAM [Concomitant]
  4. MOTRIN [Concomitant]
  5. DARVOCET (DEXTROPROPOXYPHENE NAPSILATE, PARACETAMOL) [Concomitant]
  6. PREMARIN [Concomitant]
  7. SOMA [Concomitant]
  8. ALPRAZOLAM [Concomitant]
  9. HYOSCINE HBR HYT [Concomitant]

REACTIONS (15)
  - ABDOMINAL DISTENSION [None]
  - ABDOMINAL PAIN LOWER [None]
  - BLADDER PROLAPSE [None]
  - CYSTOCELE [None]
  - DISCOMFORT [None]
  - DIVERTICULUM [None]
  - FAECAL OCCULT BLOOD POSITIVE [None]
  - FATIGUE [None]
  - FEMALE SEXUAL DYSFUNCTION [None]
  - GASTROOESOPHAGEAL REFLUX DISEASE [None]
  - HERNIA [None]
  - NODULE [None]
  - PAIN [None]
  - REFUSAL OF TREATMENT BY PATIENT [None]
  - URINARY RETENTION [None]
